FAERS Safety Report 16062299 (Version 2)
Quarter: 2019Q1

REPORT INFORMATION
  Report Type: Spontaneous
  Country: US (occurrence: US)
  Receive Date: 20190312
  Receipt Date: 20190320
  Transmission Date: 20190418
  Serious: No
  Sender: FDA-Public Use
  Company Number: US-BAYER-2019-045949

PATIENT
  Age: 20 Year
  Sex: Female

DRUGS (2)
  1. KYLEENA [Suspect]
     Active Substance: LEVONORGESTREL
     Indication: ENDOMETRIOSIS
     Dosage: 17.5 MCG/24HR, CONT
     Route: 015
     Dates: start: 20190204
  2. ELAGOLIX SODIUM [Suspect]
     Active Substance: ELAGOLIX SODIUM

REACTIONS (4)
  - Product use in unapproved indication [None]
  - Menopausal symptoms [None]
  - Night sweats [None]
  - Off label use [None]

NARRATIVE: CASE EVENT DATE: 20190204
